FAERS Safety Report 19205170 (Version 2)
Quarter: 2022Q3

REPORT INFORMATION
  Report Type: Spontaneous
  Country: US (occurrence: US)
  Receive Date: 20210503
  Receipt Date: 20220829
  Transmission Date: 20221027
  Serious: Yes (Death, Other)
  Sender: FDA-Public Use
  Company Number: US-SA-SAC20210429000616

PATIENT
  Age: 50 Year
  Sex: Female

DRUGS (1)
  1. ZANTAC [Suspect]
     Active Substance: RANITIDINE HYDROCHLORIDE
     Indication: Dyspepsia
     Dosage: 150 MG
     Route: 065
     Dates: start: 201501, end: 201906

REACTIONS (1)
  - Gastric cancer stage IV [Fatal]

NARRATIVE: CASE EVENT DATE: 20191226
